FAERS Safety Report 8911352 (Version 4)
Quarter: 2015Q3

REPORT INFORMATION
  Report Type: Spontaneous
  Country: US (occurrence: US)
  Receive Date: 20121116
  Receipt Date: 20150811
  Transmission Date: 20151125
  Serious: No
  Sender: FDA-Public Use
  Company Number: US-GLAXOSMITHKLINE-A0998079A

PATIENT
  Age: 74 Year
  Sex: Female
  Weight: 71.7 kg

DRUGS (15)
  1. CRESTOR [Concomitant]
     Active Substance: ROSUVASTATIN CALCIUM
  2. PHENERGAN [Concomitant]
     Active Substance: PROMETHAZINE HYDROCHLORIDE
  3. SYNTHROID [Concomitant]
     Active Substance: LEVOTHYROXINE SODIUM
  4. TOPROL XL [Concomitant]
     Active Substance: METOPROLOL SUCCINATE
  5. VALIUM [Concomitant]
     Active Substance: DIAZEPAM
  6. VOTRIENT [Suspect]
     Active Substance: PAZOPANIB HYDROCHLORIDE
     Indication: RENAL CANCER
     Dosage: UNK
  7. VOTRIENT [Suspect]
     Active Substance: PAZOPANIB HYDROCHLORIDE
     Indication: PANCREATIC CARCINOMA
     Dosage: UNK
  8. VOTRIENT [Suspect]
     Active Substance: PAZOPANIB HYDROCHLORIDE
     Dosage: 200 MG TABLETS TAKE 3 TABLETS OR 600 MG ONCE A DAYUNKNOWN
     Route: 048
     Dates: start: 20140520, end: 20150514
  9. LOSARTAN. [Concomitant]
     Active Substance: LOSARTAN
  10. ALLOPURINOL. [Concomitant]
     Active Substance: ALLOPURINOL
  11. VOTRIENT [Suspect]
     Active Substance: PAZOPANIB HYDROCHLORIDE
     Indication: RENAL CANCER
     Dosage: 200 MG TABLETS TAKE 3 TABLETS OR 600 MG ONCE A DAYUNKNOWN
     Route: 048
  12. ASPIRIN. [Suspect]
     Active Substance: ASPIRIN
     Indication: PRODUCT USED FOR UNKNOWN INDICATION
     Dosage: UNKNOWN
     Route: 065
  13. CLONIDINE. [Concomitant]
     Active Substance: CLONIDINE
  14. NEXIUM [Concomitant]
     Active Substance: ESOMEPRAZOLE MAGNESIUM
  15. CALCITROL [Concomitant]
     Active Substance: CALCITRIOL

REACTIONS (12)
  - Muscle spasms [Unknown]
  - Gait disturbance [Unknown]
  - Blood calcium decreased [Unknown]
  - Increased tendency to bruise [Unknown]
  - Ill-defined disorder [Unknown]
  - Dysphagia [Unknown]
  - Back pain [Unknown]
  - Surgery [Unknown]
  - Weight decreased [Unknown]
  - Fatigue [Unknown]
  - Blood pressure increased [Recovering/Resolving]
  - Malaise [Unknown]

NARRATIVE: CASE EVENT DATE: 20121004
